FAERS Safety Report 4756127-8 (Version None)
Quarter: 2005Q3

REPORT INFORMATION
  Report Type: 
  Country: None (occurrence: None)
  Receive Date: 20050826
  Receipt Date: 20041216
  Transmission Date: 20060218
  Serious: Yes (Death)
  Sender: FDA-Public Use
  Company Number: USA-2004-0018061

PATIENT
  Age: 51 Year
  Sex: Male
  Weight: 105.7 kg

DRUGS (5)
  1. OXYCODONE HCL [Suspect]
  2. PSEUDOEPHEDRINE HCL [Suspect]
  3. DOXYLAMINE (DOXYLAMINE) [Suspect]
  4. GABAPENTIN [Suspect]
  5. CAFFEINE (CAFFEINE) [Suspect]

REACTIONS (2)
  - ACCIDENTAL OVERDOSE [None]
  - MULTIPLE DRUG OVERDOSE [None]
